FAERS Safety Report 22106106 (Version 1)
Quarter: 2023Q1

REPORT INFORMATION
  Report Type: Report from Study
  Country: NL (occurrence: NL)
  Receive Date: 20230317
  Receipt Date: 20230317
  Transmission Date: 20230418
  Serious: Yes (Other)
  Sender: FDA-Public Use
  Company Number: NL-SA-2023SA078729

PATIENT
  Age: 51 Year
  Sex: Female

DRUGS (4)
  1. DUPILUMAB [Suspect]
     Active Substance: DUPILUMAB
     Indication: Dermatitis atopic
     Dosage: 600 MG, 1X
     Route: 058
  2. DUPILUMAB [Suspect]
     Active Substance: DUPILUMAB
     Dosage: 300 MG, QOW
     Route: 058
  3. KETOTIFEN [Concomitant]
     Active Substance: KETOTIFEN
     Dosage: UNK UNK, BID; ODS
     Route: 061
  4. OCULOTECT [POVIDONE] [Concomitant]
     Dosage: UNK UNK, 1X
     Route: 061

REACTIONS (3)
  - Cystoid macular oedema [Recovering/Resolving]
  - Iridocyclitis [Recovering/Resolving]
  - Glaucoma [Recovering/Resolving]
